FAERS Safety Report 5869975-8 (Version None)
Quarter: 2008Q3

REPORT INFORMATION
  Report Type: 
  Country: None (occurrence: None)
  Receive Date: 20080904
  Receipt Date: 20080904
  Transmission Date: 20090109
  Serious: Yes (Hospitalization)
  Sender: FDA-Public Use
  Company Number: PHEH1995US02068

PATIENT
  Sex: Female
  Weight: 83.6 kg

DRUGS (8)
  1. NEORAL [Suspect]
     Route: 048
     Dates: start: 19950521
  2. PREDNISONE TAB [Concomitant]
     Route: 048
  3. IMURAN [Concomitant]
     Route: 048
  4. LASIX [Concomitant]
     Route: 048
  5. INSULIN INSULATARD NPH NORDISK [Concomitant]
     Dosage: ^SLIDING SCALE^, DAILY
     Route: 058
  6. INSULIN REGULAR (INSULIN) [Concomitant]
     Dosage: ^SLIDING SCALE^, DAILY
     Route: 058
  7. QUININE [Concomitant]
     Route: 048
     Dates: start: 19950929
  8. MYCELEX [Concomitant]

REACTIONS (5)
  - INFECTION [None]
  - MOOD DISORDER DUE TO A GENERAL MEDICAL CONDITION [None]
  - MOOD SWINGS [None]
  - NEUROTOXICITY [None]
  - PARANOIA [None]
